FAERS Safety Report 9852438 (Version 2)
Quarter: 2014Q1

REPORT INFORMATION
  Report Type: Spontaneous
  Country: FR (occurrence: FR)
  Receive Date: 20140129
  Receipt Date: 20140225
  Transmission Date: 20141002
  Serious: Yes (Other)
  Sender: FDA-Public Use
  Company Number: FR-TEVA-459495ISR

PATIENT
  Sex: Female

DRUGS (2)
  1. LEELOO [Suspect]
     Indication: ORAL CONTRACEPTION
     Dosage: 1 DOSAGE FORMS DAILY;
     Route: 048
     Dates: start: 201301, end: 201302
  2. LEELOO [Suspect]
     Dosage: 1 DOSAGE FORMS DAILY;
     Route: 048
     Dates: start: 201304, end: 201307

REACTIONS (3)
  - Pregnancy on oral contraceptive [Unknown]
  - Abortion induced [Unknown]
  - Drug ineffective [Unknown]
